FAERS Safety Report 10952880 (Version 1)
Quarter: 2015Q1

REPORT INFORMATION
  Report Type: Report from Study
  Country: CZ (occurrence: CZ)
  Receive Date: 20150325
  Receipt Date: 20150325
  Transmission Date: 20150721
  Serious: Yes (Death, Other)
  Sender: FDA-Public Use
  Company Number: CZ-ABBVIE-15K-217-1365207-00

PATIENT
  Age: 68 Year
  Sex: Female

DRUGS (1)
  1. HUMIRA [Suspect]
     Active Substance: ADALIMUMAB
     Indication: RHEUMATOID ARTHRITIS
     Route: 065
     Dates: start: 20100120, end: 20110201

REACTIONS (3)
  - Lung neoplasm malignant [Unknown]
  - Lymphadenopathy mediastinal [Unknown]
  - Death [Fatal]

NARRATIVE: CASE EVENT DATE: 20110527
